FAERS Safety Report 5280009-9 (Version None)
Quarter: 2007Q1

REPORT INFORMATION
  Report Type: 
  Country: None (occurrence: None)
  Receive Date: 20061215
  Receipt Date: 20060925
  Transmission Date: 20070707
  Serious: Yes (Life-Threatening, Hospitalization, Other)
  Sender: FDA-Public Use
  Company Number: HQWYE216327SEP06

PATIENT
  Age: 55 Year
  Sex: Male
  Weight: 72.64 kg

DRUGS (4)
  1. EFFEXOR XR [Suspect]
     Indication: GENERALISED ANXIETY DISORDER
     Dosage: 75 MG 1 X PER 1 DAY, ORAL
     Route: 048
     Dates: start: 20060223, end: 20060324
  2. SEROQUEL [Concomitant]
  3. AMBIEN [Concomitant]
  4. KLONOPIN [Concomitant]

REACTIONS (2)
  - SUICIDAL IDEATION [None]
  - SUICIDE ATTEMPT [None]
